FAERS Safety Report 9081343 (Version 3)
Quarter: 2013Q2

REPORT INFORMATION
  Report Type: Spontaneous
  Country: IT (occurrence: IT)
  Receive Date: 20130130
  Receipt Date: 20130606
  Transmission Date: 20140414
  Serious: Yes (Hospitalization, Other)
  Sender: FDA-Public Use
  Company Number: IT-ELI_LILLY_AND_COMPANY-IT201301007551

PATIENT
  Age: 85 Year
  Sex: Female

DRUGS (8)
  1. FORSTEO [Suspect]
     Indication: OSTEOPOROSIS POSTMENOPAUSAL
     Dosage: 20 UG, QD
     Route: 058
     Dates: start: 20111031, end: 201205
  2. FORSTEO [Suspect]
     Dosage: 20 UG, QD
     Route: 058
     Dates: end: 201210
  3. SINTROM [Concomitant]
  4. REMERON [Concomitant]
  5. FOLINA [Concomitant]
  6. CALCIUM + VITAMIN D [Concomitant]
  7. DIBASE [Concomitant]
  8. OMEPRAZOL [Concomitant]

REACTIONS (3)
  - Gallbladder polyp [Unknown]
  - Colon neoplasm [Recovering/Resolving]
  - Anaemia [Recovered/Resolved]
